FAERS Safety Report 7720855-2 (Version None)
Quarter: 2011Q3

REPORT INFORMATION
  Report Type: 
  Country: None (occurrence: None)
  Receive Date: 20110830
  Receipt Date: 20110830
  Transmission Date: 20111222
  Serious: Yes (Other)
  Sender: FDA-Public Use
  Company Number: None

PATIENT
  Sex: Female
  Weight: 62.5964 kg

DRUGS (1)
  1. CYCLOSPORINE [Suspect]
     Indication: DERMATOMYOSITIS
     Dosage: 50 MGM DAILY ORAL
     Route: 048
     Dates: start: 20100801, end: 20110719

REACTIONS (12)
  - CHEST DISCOMFORT [None]
  - ADVERSE DRUG REACTION [None]
  - DIZZINESS [None]
  - ASTHENIA [None]
  - NERVOUSNESS [None]
  - BLOOD PRESSURE INCREASED [None]
  - TREMOR [None]
  - COUGH [None]
  - FATIGUE [None]
  - DYSPNOEA [None]
  - CHEST PAIN [None]
  - PALPITATIONS [None]
